FAERS Safety Report 8503202-8 (Version None)
Quarter: 2012Q3

REPORT INFORMATION
  Report Type: 
  Country: None (occurrence: None)
  Receive Date: 20120711
  Receipt Date: 20120704
  Transmission Date: 20120928
  Serious: Yes (Other)
  Sender: FDA-Public Use
  Company Number: JP-SANOFI-AVENTIS-2012SA048720

PATIENT
  Sex: Male

DRUGS (3)
  1. FLUOROURACIL [Suspect]
     Dosage: DAY 2 TO 6
     Route: 065
     Dates: start: 20110101
  2. TAXOTERE [Suspect]
     Route: 065
     Dates: start: 20110101
  3. CISPLATIN [Suspect]
     Route: 065
     Dates: start: 20110101

REACTIONS (7)
  - ARRHYTHMIA [None]
  - INAPPROPRIATE ANTIDIURETIC HORMONE SECRETION [None]
  - RESTLESSNESS [None]
  - HYPONATRAEMIA [None]
  - BLOOD HYPOSMOSIS [None]
  - HYPERSTHENURIA [None]
  - DISORIENTATION [None]
